FAERS Safety Report 5393369-5 (Version None)
Quarter: 2007Q3

REPORT INFORMATION
  Report Type: 
  Country: None (occurrence: None)
  Receive Date: 20070723
  Receipt Date: 20070717
  Transmission Date: 20080115
  Serious: Yes (Other)
  Sender: FDA-Public Use
  Company Number: PHEH2007US05191

PATIENT
  Age: 43 Year
  Sex: Female
  Weight: 86.621 kg

DRUGS (2)
  1. AREDIA [Suspect]
     Indication: METASTASES TO BONE
     Dosage: 90MG  Q4WKS
     Route: 042
     Dates: start: 20050101, end: 20061230
  2. TAXOTERE [Concomitant]
     Indication: BREAST CANCER
     Dates: start: 20050101, end: 20051201

REACTIONS (7)
  - BONE DISORDER [None]
  - IMPAIRED HEALING [None]
  - OSTEONECROSIS [None]
  - PAIN [None]
  - POSITRON EMISSION TOMOGRAM ABNORMAL [None]
  - TOOTH EXTRACTION [None]
  - WOUND DEBRIDEMENT [None]
